FAERS Safety Report 11022449 (Version 1)
Quarter: 2015Q2

REPORT INFORMATION
  Report Type: Other
  Country: CA (occurrence: CA)
  Receive Date: 20150413
  Receipt Date: 20150413
  Transmission Date: 20150821
  Serious: Yes (Life-Threatening, Other)
  Sender: FDA-Public Use
  Company Number: CA-TAKEDA-2015TUS004627

PATIENT
  Age: 64 Year
  Sex: Female

DRUGS (10)
  1. DOCUSATE SODIUM. [Concomitant]
     Active Substance: DOCUSATE SODIUM
  2. HEPARIN SODIUM. [Concomitant]
     Active Substance: HEPARIN SODIUM
  3. LEVOTHYROXINE [Concomitant]
     Active Substance: LEVOTHYROXINE
  4. ULORIC [Suspect]
     Active Substance: FEBUXOSTAT
     Indication: GOUT
     Dosage: 40 MG, 1 EVERY 1 DAY
     Route: 048
  5. AMLODIPINE [Concomitant]
     Active Substance: AMLODIPINE BESYLATE
  6. ENTERIC COATED ASA [Concomitant]
     Active Substance: ASPIRIN
  7. ULORIC [Suspect]
     Active Substance: FEBUXOSTAT
     Indication: PROPHYLAXIS
  8. ATORVASTATIN CALCIUM. [Concomitant]
     Active Substance: ATORVASTATIN CALCIUM
  9. HUMULIN                            /00646003/ [Concomitant]
  10. METOPROLOL [Concomitant]
     Active Substance: METOPROLOL

REACTIONS (5)
  - Haemorrhage [Unknown]
  - Haemoglobin decreased [Unknown]
  - Acute myocardial infarction [Unknown]
  - Renal tubular necrosis [Unknown]
  - Blood creatinine increased [Unknown]
